FAERS Safety Report 10268791 (Version 2)
Quarter: 2014Q3

REPORT INFORMATION
  Report Type: Spontaneous
  Country: US (occurrence: US)
  Receive Date: 20140630
  Receipt Date: 20140820
  Transmission Date: 20150326
  Serious: Yes (Hospitalization)
  Sender: FDA-Public Use
  Company Number: US-GLAXOSMITHKLINE-A1078247A

PATIENT
  Age: 78 Year
  Sex: Male
  Weight: 63.6 kg

DRUGS (18)
  1. PROAIR HFA [Concomitant]
     Active Substance: ALBUTEROL SULFATE
  2. FUROSEMIDE. [Concomitant]
     Active Substance: FUROSEMIDE
  3. ISOSORBIDE [Concomitant]
     Active Substance: ISOSORBIDE
  4. SPIRIVA [Suspect]
     Active Substance: TIOTROPIUM BROMIDE MONOHYDRATE
     Indication: DYSPNOEA
     Dosage: 1PUFF PER DAY
  5. ADVAIR HFA [Suspect]
     Active Substance: FLUTICASONE PROPIONATE\SALMETEROL XINAFOATE
     Indication: CHRONIC OBSTRUCTIVE PULMONARY DISEASE
     Dosage: 1PUFF TWICE PER DAY
     Route: 055
  6. ALLOPURINOL. [Concomitant]
     Active Substance: ALLOPURINOL
  7. MOTION SICKNESS MEDICATION [Concomitant]
  8. PLAVIX [Concomitant]
     Active Substance: CLOPIDOGREL BISULFATE
  9. ASPIRIN. [Concomitant]
     Active Substance: ASPIRIN
  10. LEVOTHYROXINE [Concomitant]
     Active Substance: LEVOTHYROXINE
  11. METOPROLOL [Concomitant]
     Active Substance: METOPROLOL
  12. SIMVASTATIN. [Concomitant]
     Active Substance: SIMVASTATIN
  13. VENTOLIN [Suspect]
     Active Substance: ALBUTEROL SULFATE
     Indication: BRONCHOSPASM
     Dosage: 2PUFF TWICE PER DAY
     Route: 055
  14. MUCINEX [Concomitant]
     Active Substance: GUAIFENESIN
  15. IRON [Concomitant]
     Active Substance: IRON
  16. GLIPIZIDE. [Concomitant]
     Active Substance: GLIPIZIDE
  17. POTASSIUM [Concomitant]
     Active Substance: POTASSIUM
  18. HYDROCODONE [Concomitant]
     Active Substance: HYDROCODONE

REACTIONS (8)
  - Dyspnoea [Recovered/Resolved]
  - Heart valve incompetence [Recovered/Resolved]
  - Cardiac operation [Recovered/Resolved]
  - Pneumonia [Recovered/Resolved]
  - Heart valve operation [Recovered/Resolved]
  - Mobility decreased [Recovered/Resolved]
  - Chronic obstructive pulmonary disease [Recovered/Resolved]
  - Malaise [Recovered/Resolved]

NARRATIVE: CASE EVENT DATE: 2014
